FAERS Safety Report 21864480 (Version 3)
Quarter: 2023Q1

REPORT INFORMATION
  Report Type: Report from Study
  Country: BG (occurrence: BG)
  Receive Date: 20230116
  Receipt Date: 20230216
  Transmission Date: 20230417
  Serious: Yes (Hospitalization, Other)
  Sender: FDA-Public Use
  Company Number: BG-ABBVIE-4268547

PATIENT
  Age: 59 Year
  Sex: Male

DRUGS (1)
  1. RINVOQ [Suspect]
     Active Substance: UPADACITINIB
     Indication: Psoriatic arthropathy
     Dosage: END DATE: 2022
     Route: 048
     Dates: start: 202209

REACTIONS (2)
  - Perforated ulcer [Unknown]
  - Psoriasis [Unknown]
